FAERS Safety Report 6366608-1 (Version None)
Quarter: 2009Q3

REPORT INFORMATION
  Report Type: 
  Country: None (occurrence: None)
  Receive Date: 20090915
  Receipt Date: 20090901
  Transmission Date: 20100115
  Serious: Yes (Hospitalization)
  Sender: FDA-Public Use
  Company Number: 2009-1674

PATIENT
  Age: 53 Year
  Sex: Female

DRUGS (4)
  1. LANREOTIDE AUTOGEL (LANREOTIDE) (LANREOTIDE ACETATE) [Suspect]
     Indication: CARCINOID TUMOUR
     Dosage: (90 MG, 1 IN 28 D) SUBCUTANEOUS
     Route: 058
     Dates: start: 20090302
  2. 0XYCONTIN (OXYCODONE HYDROCHLORIDE) [Concomitant]
  3. PRILOSEC [Concomitant]
  4. RAMIPRIL [Concomitant]

REACTIONS (10)
  - BLOOD CHLORIDE DECREASED [None]
  - BLOOD ELECTROLYTES ABNORMAL [None]
  - BLOOD POTASSIUM DECREASED [None]
  - BLOOD PRESSURE DECREASED [None]
  - BLOOD SODIUM INCREASED [None]
  - CARBON DIOXIDE DECREASED [None]
  - DIARRHOEA [None]
  - INJECTION SITE NODULE [None]
  - MALAISE [None]
  - VOMITING [None]
